FAERS Safety Report 5302107-3 (Version None)
Quarter: 2007Q2

REPORT INFORMATION
  Report Type: 
  Country: None (occurrence: None)
  Receive Date: 20070419
  Receipt Date: 20070412
  Transmission Date: 20071010
  Serious: Yes (Hospitalization)
  Sender: FDA-Public Use
  Company Number: FR-GLAXOSMITHKLINE-B0466003A

PATIENT
  Age: 44 Year
  Sex: Male

DRUGS (1)
  1. TRIZIVIR [Suspect]
     Indication: HIV INFECTION
     Dosage: 2UNIT PER DAY
     Route: 048
     Dates: start: 20060405

REACTIONS (5)
  - ASTHENIA [None]
  - EOSINOPHILIA [None]
  - MYALGIA [None]
  - RASH ERYTHEMATOUS [None]
  - TRANSAMINASES INCREASED [None]
